FAERS Safety Report 4804546-3 (Version None)
Quarter: 2005Q4

REPORT INFORMATION
  Report Type: 
  Country: None (occurrence: None)
  Receive Date: 20051020
  Receipt Date: 20040108
  Transmission Date: 20060501
  Serious: Yes (Hospitalization)
  Sender: FDA-Public Use
  Company Number: 200411358JP

PATIENT
  Age: 42 Year
  Sex: Female
  Weight: 46 kg

DRUGS (15)
  1. ARAVA [Suspect]
     Indication: RHEUMATOID ARTHRITIS
     Route: 048
     Dates: start: 20031017, end: 20040105
  2. LORAZEPAM [Concomitant]
     Indication: INSOMNIA
     Route: 048
  3. RELIFEN [Concomitant]
     Indication: RHEUMATOID ARTHRITIS
     Route: 048
  4. MUCOSTA [Concomitant]
     Indication: GASTRITIS
     Route: 048
  5. MUCOSTA [Concomitant]
     Indication: PROPHYLAXIS
     Route: 048
  6. AMOBAN [Concomitant]
     Indication: INSOMNIA
     Route: 048
  7. ADOFEED [Concomitant]
     Indication: RHEUMATOID ARTHRITIS
     Route: 003
  8. VOLTAREN [Concomitant]
     Indication: RHEUMATOID ARTHRITIS
     Route: 054
  9. KETOPROFEN [Concomitant]
     Indication: RHEUMATOID ARTHRITIS
     Route: 003
  10. PREDNISOLONE [Concomitant]
     Indication: RHEUMATOID ARTHRITIS
     Route: 048
  11. NERIPROCT [Concomitant]
     Indication: HAEMORRHOIDS
     Route: 054
     Dates: end: 20031210
  12. FERROMIA [Concomitant]
     Route: 048
  13. MYONAL [Concomitant]
     Indication: MUSCULOSKELETAL STIFFNESS
     Route: 048
     Dates: start: 20031225
  14. DEPAS [Concomitant]
     Indication: MUSCULOSKELETAL STIFFNESS
     Route: 048
     Dates: start: 20031225
  15. SOSEGON [Concomitant]
     Route: 030
     Dates: start: 20040109

REACTIONS (3)
  - HEADACHE [None]
  - MUSCULOSKELETAL STIFFNESS [None]
  - RESTLESS LEGS SYNDROME [None]
